FAERS Safety Report 4892345-6 (Version None)
Quarter: 2006Q1

REPORT INFORMATION
  Report Type: 
  Country: None (occurrence: None)
  Receive Date: 20060126
  Receipt Date: 20060120
  Transmission Date: 20060701
  Serious: Yes (Hospitalization)
  Sender: FDA-Public Use
  Company Number: US-GLAXOSMITHKLINE-A0590949A

PATIENT
  Age: 2 Week
  Sex: Female

DRUGS (2)
  1. IMITREX [Suspect]
     Indication: DRUG USE FOR UNKNOWN INDICATION
     Dosage: 50MG UNKNOWN
  2. IMITREX [Suspect]
     Dosage: 6MG UNKNOWN

REACTIONS (2)
  - DRUG EXPOSURE DURING PREGNANCY [None]
  - RESPIRATORY SYNCYTIAL VIRUS INFECTION [None]
